FAERS Safety Report 8215771 (Version 4)
Quarter: 2013Q2

REPORT INFORMATION
  Report Type: Report from Study
  Country: US (occurrence: US)
  Receive Date: 20111031
  Receipt Date: 20130527
  Transmission Date: 20140414
  Serious: No
  Sender: FDA-Public Use
  Company Number: PHEH2011US07941

PATIENT
  Age: 78 Year
  Sex: Female

DRUGS (12)
  1. TASIGNA [Suspect]
     Indication: NEOPLASM MALIGNANT
     Dosage: 400 MG, BID
     Route: 048
     Dates: start: 20110610
  2. TASIGNA [Suspect]
     Dosage: 200 MG, QD
     Route: 048
     Dates: start: 201110
  3. TASIGNA [Suspect]
     Dosage: 200 MG, BID
     Route: 048
     Dates: start: 20111108
  4. CELEBREX [Concomitant]
     Dosage: UNK UKN, UNK
  5. DEXLANSOPRAZOLE [Concomitant]
     Dosage: UNK UKN, UNK
  6. ATENOLOL [Concomitant]
     Dosage: UNK UKN, UNK
  7. TRAMADOL [Concomitant]
     Dosage: UNK UKN, UNK
  8. HYDROMORPHONE [Concomitant]
     Dosage: UNK UKN, UNK
  9. TRIAMTEREN [Concomitant]
     Dosage: UNK UKN, UNK
  10. HYDROCHLOROTHIAZIDE [Concomitant]
     Dosage: UNK UKN, UNK
  11. CITALOPRAM HYDROBROMIDE [Concomitant]
     Dosage: UNK UKN, UNK
  12. ALLOPURINOL [Concomitant]

REACTIONS (5)
  - Gait disturbance [Recovered/Resolved]
  - Blood iron decreased [Unknown]
  - Pain in extremity [Unknown]
  - Rash [Recovered/Resolved]
  - Fatigue [Recovered/Resolved]
